FAERS Safety Report 7202546-X (Version None)
Quarter: 2010Q4

REPORT INFORMATION
  Report Type: 
  Country: None (occurrence: None)
  Receive Date: 20101229
  Receipt Date: 20101222
  Transmission Date: 20110411
  Serious: Yes (Other)
  Sender: FDA-Public Use
  Company Number: CA-MERCK-1012USA03660

PATIENT
  Age: 73 Year
  Sex: Female

DRUGS (12)
  1. FOSAMAX [Suspect]
     Route: 048
  2. ADVAIR [Concomitant]
     Route: 065
  3. ATROVENT [Concomitant]
     Route: 065
  4. BISOPROLOL [Concomitant]
     Route: 065
  5. INDAPAMIDE [Concomitant]
     Route: 065
  6. LASIX [Concomitant]
     Route: 065
  7. LIPITOR [Concomitant]
     Route: 065
  8. METFORMIN [Concomitant]
     Route: 065
  9. NORVASC [Concomitant]
     Route: 065
  10. PREVACID [Concomitant]
     Route: 065
  11. RAMIPRIL [Concomitant]
     Route: 065
  12. VENTOLIN [Concomitant]
     Route: 065

REACTIONS (2)
  - OSTEONECROSIS [None]
  - PAIN IN JAW [None]
